FAERS Safety Report 7680066-6 (Version None)
Quarter: 2011Q3

REPORT INFORMATION
  Report Type: 
  Country: None (occurrence: None)
  Receive Date: 20110812
  Receipt Date: 20110805
  Transmission Date: 20111222
  Serious: Yes (Hospitalization)
  Sender: FDA-Public Use
  Company Number: FR-ROCHE-710421

PATIENT
  Sex: Male
  Weight: 72 kg

DRUGS (7)
  1. METHOTREXATE [Suspect]
     Route: 065
     Dates: start: 20081001, end: 20100609
  2. ESOMEPRAZOLE MAGNESIUM [Concomitant]
     Dates: start: 20080201
  3. PREDNISONE [Concomitant]
     Dates: start: 20100210
  4. BLINDED TOCILIZUMAB [Suspect]
     Indication: RHEUMATOID ARTHRITIS
     Dosage: DOSES ARE BLINDED; LAST DOSE PRIOR TO SAE: 07 JUNE  2010; PERMANENTLY DISCONTINUED
     Route: 042
     Dates: start: 20100510, end: 20100607
  5. CLONAZEPAM [Concomitant]
     Dates: start: 20090101
  6. ALENDRONATE SODIUM [Concomitant]
     Dosage: TDD: 70/ WEEK
     Dates: start: 20090901
  7. ACID FOLIC [Concomitant]
     Dosage: DRUG REPORTED: ACIDE FOLIC
     Dates: start: 20081001, end: 20100607

REACTIONS (2)
  - DEEP VEIN THROMBOSIS [None]
  - PULMONARY EMBOLISM [None]
